FAERS Safety Report 4839153-X (Version None)
Quarter: 2005Q4

REPORT INFORMATION
  Report Type: 
  Country: None (occurrence: None)
  Receive Date: 20051128
  Receipt Date: 20051128
  Transmission Date: 20060501
  Serious: Yes (Life-Threatening)
  Sender: FDA-Public Use
  Company Number: None

PATIENT
  Age: 30 Year
  Sex: Female
  Weight: 69.4003 kg

DRUGS (2)
  1. LUPRON DEPOT [Suspect]
     Indication: ENDOMETRIOSIS
     Dosage: 3.75MG   EVERY 3 MONTHS   IM
     Route: 030
     Dates: start: 20050510, end: 20050818
  2. LUPRON DEPOT [Suspect]
     Indication: ENDOMETRIOSIS
     Dosage: 3.75MG   EVERY 3 MONTHS   IM
     Route: 030
     Dates: start: 20050810, end: 20051118

REACTIONS (8)
  - BONE PAIN [None]
  - CRYING [None]
  - DEPRESSION [None]
  - MEMORY IMPAIRMENT [None]
  - MOOD ALTERED [None]
  - SELF-INJURIOUS IDEATION [None]
  - SUICIDAL IDEATION [None]
  - THINKING ABNORMAL [None]
